FAERS Safety Report 7563452-4 (Version None)
Quarter: 2011Q2

REPORT INFORMATION
  Report Type: 
  Country: None (occurrence: None)
  Receive Date: 20110622
  Receipt Date: 20110609
  Transmission Date: 20111010
  Serious: No
  Sender: FDA-Public Use
  Company Number: ES-ELI_LILLY_AND_COMPANY-ES201106002486

PATIENT
  Sex: Female

DRUGS (1)
  1. ZYPREXA [Suspect]
     Dosage: UNK

REACTIONS (5)
  - FATIGUE [None]
  - ANAEMIA [None]
  - MUSCULAR WEAKNESS [None]
  - DRUG LEVEL DECREASED [None]
  - MOVEMENT DISORDER [None]
